FAERS Safety Report 10097199 (Version 1)
Quarter: 2014Q2

REPORT INFORMATION
  Report Type: Spontaneous
  Country: US (occurrence: US)
  Receive Date: 20140422
  Receipt Date: 20140422
  Transmission Date: 20141212
  Serious: Yes (Hospitalization, Other)
  Sender: FDA-Public Use
  Company Number: US-GILEAD-2014-0100378

PATIENT
  Sex: Male

DRUGS (4)
  1. RANEXA [Suspect]
     Indication: ANGINA PECTORIS
     Dosage: 500 MG, BID
     Route: 065
     Dates: start: 2011
  2. PLAVIX [Concomitant]
  3. DILTIAZEM [Concomitant]
  4. ELIQUIS [Concomitant]

REACTIONS (3)
  - Pneumonia [Unknown]
  - Angina pectoris [Not Recovered/Not Resolved]
  - Medication residue present [Unknown]
